FAERS Safety Report 4401168-3 (Version None)
Quarter: 2004Q3

REPORT INFORMATION
  Report Type: 
  Country: None (occurrence: None)
  Receive Date: 20040907
  Receipt Date: 20031201
  Transmission Date: 20050211
  Serious: No
  Sender: FDA-Public Use
  Company Number: US-BRISTOL-MYERS SQUIBB COMPANY-12447306

PATIENT
  Age: 63 Year
  Sex: Female

DRUGS (1)
  1. COUMADIN [Suspect]
     Route: 048

REACTIONS (4)
  - AGEUSIA [None]
  - DYSPEPSIA [None]
  - FLATULENCE [None]
  - SWELLING [None]
